FAERS Safety Report 8735019 (Version 2)
Quarter: 2012Q4

REPORT INFORMATION
  Report Type: Report from Study
  Country: FR (occurrence: FR)
  Receive Date: 20120821
  Receipt Date: 20120918
  Transmission Date: 20130627
  Serious: Yes (Hospitalization)
  Sender: FDA-Public Use
  Company Number: FR-BRISTOL-MYERS SQUIBB COMPANY-16857054

PATIENT
  Age: 67 Year
  Sex: Male

DRUGS (2)
  1. CARBOPLATIN [Suspect]
     Indication: NON-SMALL CELL LUNG CANCER
     Dosage: 1DF=590 or 670
     Route: 042
     Dates: start: 20120706, end: 20120727
  2. PACLITAXEL [Suspect]
     Indication: NON-SMALL CELL LUNG CANCER
     Dosage: 670mg,690mg,No of courses: 3,27Jul12-27Jul12
     Route: 042
     Dates: start: 20120706, end: 20120727

REACTIONS (1)
  - Pyrexia [Recovered/Resolved]
